FAERS Safety Report 5045320-5 (Version None)
Quarter: 2006Q3

REPORT INFORMATION
  Report Type: 
  Country: None (occurrence: None)
  Receive Date: 20060707
  Receipt Date: 20060628
  Transmission Date: 20061208
  Serious: Yes (Hospitalization)
  Sender: FDA-Public Use
  Company Number: KR-AVENTIS-200616791GDDC

PATIENT
  Age: 61 Year
  Sex: Female
  Weight: 59.4 kg

DRUGS (2)
  1. TAXOTERE [Suspect]
     Indication: NON-SMALL CELL LUNG CANCER
     Route: 042
     Dates: start: 20060512, end: 20060609
  2. CISPLATIN [Suspect]
     Indication: NON-SMALL CELL LUNG CANCER
     Route: 042
     Dates: start: 20060512, end: 20060609

REACTIONS (5)
  - BLOOD CREATININE INCREASED [None]
  - FEBRILE NEUTROPENIA [None]
  - MYALGIA [None]
  - PNEUMONIA [None]
  - RENAL FAILURE ACUTE [None]
